FAERS Safety Report 4336724-4 (Version None)
Quarter: 2004Q1

REPORT INFORMATION
  Report Type: 
  Country: None (occurrence: None)
  Receive Date: 20040329
  Receipt Date: 20040130
  Transmission Date: 20041129
  Serious: No
  Sender: FDA-Public Use
  Company Number: USA040258075

PATIENT
  Age: 42 Year
  Sex: Female
  Weight: 54 kg

DRUGS (6)
  1. STRATTERA [Suspect]
     Indication: ABNORMAL BEHAVIOUR
     Dosage: 40 MG/DAILY
     Dates: start: 20040129
  2. REMERON [Concomitant]
  3. ZANAFLEX [Concomitant]
  4. ESTRATEST [Concomitant]
  5. MULTI-VITAMIN [Concomitant]
  6. TOPAMAX [Concomitant]

REACTIONS (2)
  - HEART RATE INCREASED [None]
  - NERVOUSNESS [None]
